FAERS Safety Report 22092147 (Version 1)
Quarter: 2023Q1

REPORT INFORMATION
  Report Type: Spontaneous
  Country: GB (occurrence: GB)
  Receive Date: 20230314
  Receipt Date: 20230314
  Transmission Date: 20230418
  Serious: Yes (Other)
  Sender: FDA-Public Use
  Company Number: GB-AMGEN-GBRSP2023039476

PATIENT
  Age: 63 Year
  Sex: Male
  Weight: 85 kg

DRUGS (4)
  1. ADALIMUMAB [Suspect]
     Active Substance: ADALIMUMAB
     Indication: Psoriasis
     Dosage: 40 MILLIGRAM, QWK
     Route: 065
     Dates: start: 20190101
  2. CYCLOSPORINE [Concomitant]
     Active Substance: CYCLOSPORINE
     Dosage: UNK
     Dates: start: 20090904
  3. TAMSULOSIN HYDROCHLORIDE [Concomitant]
     Active Substance: TAMSULOSIN HYDROCHLORIDE
     Dosage: UNK
     Dates: start: 20110615
  4. CHLOROCRESOL [Concomitant]
     Active Substance: CHLOROCRESOL
     Dosage: UNK
     Dates: start: 20111118

REACTIONS (1)
  - Colon cancer metastatic [Not Recovered/Not Resolved]

NARRATIVE: CASE EVENT DATE: 20220722
